FAERS Safety Report 10060463 (Version 3)
Quarter: 2014Q2

REPORT INFORMATION
  Report Type: Report from Study
  Country: JP (occurrence: JP)
  Receive Date: 20140404
  Receipt Date: 20140410
  Transmission Date: 20141212
  Serious: Yes (Other)
  Sender: FDA-Public Use
  Company Number: JP-PFIZER INC-2014069964

PATIENT
  Age: 62 Year
  Sex: Male

DRUGS (5)
  1. CISPLATIN [Suspect]
     Indication: HORMONE-REFRACTORY PROSTATE CANCER
     Dosage: 70 MG/M2, CYCLIC, DAY 1 AND REPEATED IN A 21-DAY CYCLE
  2. ETOPOSIDE [Suspect]
     Indication: HORMONE-REFRACTORY PROSTATE CANCER
     Dosage: 100 MG/M2, CYCLIC, DAY 1 AND REPEATED IN A 21-DAY CYCLE
  3. ESTRAMUSTINE SODIUM PHOSPHATE [Suspect]
     Indication: HORMONE-REFRACTORY PROSTATE CANCER
     Dosage: UNK
  4. DEXAMETHASONE [Suspect]
     Indication: HORMONE-REFRACTORY PROSTATE CANCER
     Dosage: UNK
  5. ZOLEDRONIC ACID [Concomitant]
     Indication: PROPHYLAXIS
     Dosage: UNK

REACTIONS (2)
  - Leukopenia [Unknown]
  - Anaemia [Unknown]
